FAERS Safety Report 9319921 (Version 2)
Quarter: 2013Q3

REPORT INFORMATION
  Report Type: Report from Study
  Country: AU (occurrence: AU)
  Receive Date: 20130530
  Receipt Date: 20130827
  Transmission Date: 20140515
  Serious: Yes (Other)
  Sender: FDA-Public Use
  Company Number: AU-JNJFOC-20130213200

PATIENT
  Age: 67 Year
  Sex: Female

DRUGS (15)
  1. STELARA [Suspect]
     Indication: PSORIASIS
     Route: 058
     Dates: start: 20130212
  2. STELARA [Suspect]
     Indication: PSORIASIS
     Route: 058
     Dates: start: 20121120
  3. STELARA [Suspect]
     Indication: PSORIASIS
     Route: 058
     Dates: start: 20120828
  4. STELARA [Suspect]
     Indication: PSORIASIS
     Route: 058
     Dates: start: 20120607
  5. STELARA [Suspect]
     Indication: PSORIASIS
     Route: 058
     Dates: start: 20120313
  6. STELARA [Suspect]
     Indication: PSORIASIS
     Route: 058
     Dates: start: 20111220
  7. STELARA [Suspect]
     Indication: PSORIASIS
     Route: 058
     Dates: start: 20110927
  8. STELARA [Suspect]
     Indication: PSORIASIS
     Route: 058
     Dates: start: 20110705
  9. STELARA [Suspect]
     Indication: PSORIASIS
     Route: 058
     Dates: start: 20110412
  10. STELARA [Suspect]
     Indication: PSORIASIS
     Route: 058
     Dates: start: 20110116
  11. STELARA [Suspect]
     Indication: PSORIASIS
     Route: 058
     Dates: start: 20101028
  12. STELARA [Suspect]
     Indication: PSORIASIS
     Route: 058
     Dates: start: 20100805
  13. STELARA [Suspect]
     Indication: PSORIASIS
     Route: 058
     Dates: start: 20100513
  14. STELARA [Suspect]
     Indication: PSORIASIS
     Route: 058
     Dates: start: 20100415
  15. UNKNOWN MEDICATION [Concomitant]
     Route: 065

REACTIONS (4)
  - Renal disorder [Unknown]
  - Malignant melanoma [Recovered/Resolved]
  - Skin lesion [Unknown]
  - Inappropriate schedule of drug administration [Unknown]
